FAERS Safety Report 25784689 (Version 1)
Quarter: 2025Q3

REPORT INFORMATION
  Report Type: Spontaneous
  Country: KR (occurrence: KR)
  Receive Date: 20250910
  Receipt Date: 20250910
  Transmission Date: 20251020
  Serious: Yes (Other)
  Sender: Vantive US Healthcare
  Company Number: KR-VANTIVE-2025VAN004136

PATIENT
  Age: 9 Year
  Sex: Female

DRUGS (1)
  1. CALCIUM CHLORIDE\DEXTROSE\MAGNESIUM CHLORIDE\SODIUM CHLORIDE [Suspect]
     Active Substance: CALCIUM CHLORIDE\DEXTROSE\MAGNESIUM CHLORIDE\SODIUM CHLORIDE
     Route: 033

REACTIONS (1)
  - Bloody peritoneal effluent [Unknown]

NARRATIVE: CASE EVENT DATE: 20250904
